FAERS Safety Report 22227653 (Version 1)
Quarter: 2023Q2

REPORT INFORMATION
  Report Type: Spontaneous
  Country: AR (occurrence: AR)
  Receive Date: 20230419
  Receipt Date: 20230419
  Transmission Date: 20230722
  Serious: Yes (Death, Other)
  Sender: FDA-Public Use
  Company Number: AR-BAYER-2023A051735

PATIENT
  Age: 76 Year
  Sex: Female

DRUGS (1)
  1. ULTRAVIST [Suspect]
     Active Substance: IOPROMIDE
     Dosage: 80 ML, ONCE
     Route: 042
     Dates: start: 20230304, end: 20230304

REACTIONS (5)
  - Skin warm [Fatal]
  - Nausea [Fatal]
  - Hypotension [Fatal]
  - Loss of consciousness [Fatal]
  - Cardiac arrest [Fatal]

NARRATIVE: CASE EVENT DATE: 20230304
